FAERS Safety Report 9816940 (Version 2)
Quarter: 2014Q1

REPORT INFORMATION
  Report Type: Spontaneous
  Country: CA (occurrence: CA)
  Receive Date: 20140114
  Receipt Date: 20140114
  Transmission Date: 20141002
  Serious: Yes (Other)
  Sender: FDA-Public Use
  Company Number: CA-GLAXOSMITHKLINE-A0852059A

PATIENT
  Age: 70 Year
  Sex: Female

DRUGS (4)
  1. ADVAIR [Suspect]
     Indication: EMPHYSEMA
     Dosage: 1PUFF TWICE PER DAY
     Route: 055
     Dates: start: 1998
  2. VENTOLIN [Suspect]
     Indication: PRODUCT USED FOR UNKNOWN INDICATION
     Route: 065
  3. VITAMIN D [Concomitant]
  4. SPIRIVA [Concomitant]
     Dates: start: 20130107

REACTIONS (14)
  - Pneumonia [Unknown]
  - Dyspnoea exertional [Unknown]
  - Dyspnoea [Unknown]
  - Ill-defined disorder [Unknown]
  - Dyspnoea exertional [Unknown]
  - Dyspnoea exertional [Unknown]
  - Aphonia [Unknown]
  - Asthma [Unknown]
  - Increased upper airway secretion [Unknown]
  - Oropharyngeal discomfort [Unknown]
  - Pleurisy [Unknown]
  - Osteoporosis [Unknown]
  - Pain [Unknown]
  - Dysphonia [Unknown]
